APPROVED DRUG PRODUCT: HAILEY 1.5/30
Active Ingredient: ETHINYL ESTRADIOL; NORETHINDRONE ACETATE
Strength: 0.03MG;1.5MG
Dosage Form/Route: TABLET;ORAL-21
Application: A209297 | Product #001 | TE Code: AB
Applicant: GLENMARK SPECIALTY SA
Approved: Jun 5, 2018 | RLD: No | RS: No | Type: RX